FAERS Safety Report 5428327-5 (Version None)
Quarter: 2007Q3

REPORT INFORMATION
  Report Type: 
  Country: None (occurrence: None)
  Receive Date: 20070731
  Receipt Date: 20070409
  Transmission Date: 20080115
  Serious: No
  Sender: FDA-Public Use
  Company Number: US200704002093

PATIENT
  Age: 55 Year
  Sex: Female
  Weight: 79.4 kg

DRUGS (5)
  1. BYETTA [Suspect]
     Indication: TYPE 2 DIABETES MELLITUS
     Dosage: 5 UG, 2/D, SUBCUTANEOUS ; 10 UG, 2/D, SUBCUTANEOUS
     Route: 058
     Dates: start: 20050901, end: 20051001
  2. BYETTA [Suspect]
     Indication: TYPE 2 DIABETES MELLITUS
     Dosage: 5 UG, 2/D, SUBCUTANEOUS ; 10 UG, 2/D, SUBCUTANEOUS
     Route: 058
     Dates: start: 20051001
  3. EXENATIDE 5MCG PEN, DISPOSABLE DEVICE (EXENATIDE PEN (5 MCG)) PEN, DIS [Concomitant]
  4. GLYBURIDE [Concomitant]
  5. PHENERGAN [Concomitant]

REACTIONS (7)
  - CYSTITIS [None]
  - FURUNCLE [None]
  - INCREASED APPETITE [None]
  - INJECTION SITE REACTION [None]
  - NEPHROLITHIASIS [None]
  - RENAL CYST [None]
  - WEIGHT INCREASED [None]
